FAERS Safety Report 20537134 (Version 1)
Quarter: 2022Q1

REPORT INFORMATION
  Report Type: Spontaneous
  Country: US (occurrence: US)
  Receive Date: 20220302
  Receipt Date: 20220302
  Transmission Date: 20220424
  Serious: Yes (Other)
  Sender: FDA-Public Use
  Company Number: US-MALLINCKRODT-T202200865

PATIENT
  Sex: Male
  Weight: 85 kg

DRUGS (1)
  1. H.P. ACTHAR [Suspect]
     Active Substance: CORTICOTROPIN
     Indication: Rheumatoid arthritis
     Dosage: 80 UNITS (1 ML) ONCE A WEEK
     Route: 058
     Dates: start: 201812

REACTIONS (1)
  - Atrial fibrillation [Unknown]
